FAERS Safety Report 9633307 (Version 2)
Quarter: 2013Q4

REPORT INFORMATION
  Report Type: Spontaneous
  Country: US (occurrence: US)
  Receive Date: 20131021
  Receipt Date: 20131031
  Transmission Date: 20140711
  Serious: Yes (Hospitalization, Other)
  Sender: FDA-Public Use
  Company Number: US-SA-2013SA104262

PATIENT
  Age: 76 Year
  Sex: Female
  Weight: 103.87 kg

DRUGS (13)
  1. LANTUS SOLOSTAR [Suspect]
     Indication: TYPE 2 DIABETES MELLITUS
     Dosage: DOSE:20 UNIT(S)
     Route: 058
     Dates: start: 2011
  2. SOLOSTAR [Concomitant]
     Dates: start: 2011
  3. NOVOLOG [Concomitant]
     Indication: DIABETES MELLITUS
     Dosage: 8-10 UNITS
     Dates: start: 2010
  4. CARVEDILOL [Concomitant]
     Indication: HYPERTENSION
     Dates: start: 2003
  5. LEVOTHYROXINE [Concomitant]
  6. HYDROCODONE [Concomitant]
     Indication: BACK PAIN
  7. HYDROCODONE [Concomitant]
     Indication: ARTHRITIS
  8. AMLODIPINE [Concomitant]
  9. BUSPAR [Concomitant]
  10. LETROZOLE [Concomitant]
  11. WARFARIN [Concomitant]
  12. OMEPRAZOLE [Concomitant]
  13. ATORVASTATIN [Concomitant]

REACTIONS (3)
  - Breast cancer [Not Recovered/Not Resolved]
  - Nausea [Not Recovered/Not Resolved]
  - Thrombosis [Not Recovered/Not Resolved]
